FAERS Safety Report 25955332 (Version 1)
Quarter: 2025Q4

REPORT INFORMATION
  Report Type: Report from Study
  Country: EU (occurrence: EU)
  Receive Date: 20251024
  Receipt Date: 20251024
  Transmission Date: 20260119
  Serious: Yes (Hospitalization)
  Sender: IPSEN BIOPHARMACEUTICALS, INC.
  Company Number: EU-SERVIER-S23010570

PATIENT
  Age: 61 Year
  Sex: Female
  Weight: 57.4 kg

DRUGS (8)
  1. ONIVYDE [Suspect]
     Active Substance: IRINOTECAN HYDROCHLORIDE
     Indication: Pancreatic carcinoma metastatic
     Dosage: 50, MG/M2, ONCE EVERY TWO WEEKS (Q2W)
     Dates: start: 20230822, end: 20230905
  2. ONIVYDE [Suspect]
     Active Substance: IRINOTECAN HYDROCHLORIDE
     Dosage: 43, MG/M2, ONCE EVERY TWO WEEKS (Q2W)
     Dates: start: 20231003, end: 20231003
  3. FLUOROURACIL [Suspect]
     Active Substance: FLUOROURACIL
     Indication: Pancreatic carcinoma metastatic
     Dosage: 2400 MG/M2, Q2W
     Dates: start: 20230822, end: 20230905
  4. FLUOROURACIL [Suspect]
     Active Substance: FLUOROURACIL
     Dosage: 1800 MG/M2, Q2W
     Dates: start: 20231003, end: 20231003
  5. LEUCOVORIN [Suspect]
     Active Substance: LEUCOVORIN\LEUCOVORIN CALCIUM
     Indication: Pancreatic carcinoma metastatic
     Dosage: 200 MG/M2, Q2W
     Dates: start: 20230822, end: 20230905
  6. LEUCOVORIN [Suspect]
     Active Substance: LEUCOVORIN\LEUCOVORIN CALCIUM
     Dosage: 200 MG/M2, Q2W
     Dates: start: 20231003, end: 20231003
  7. OXALIPLATIN [Suspect]
     Active Substance: OXALIPLATIN
     Indication: Pancreatic carcinoma metastatic
     Dosage: 60 MG/M2, Q2W
     Dates: start: 20230822, end: 20230905
  8. OXALIPLATIN [Suspect]
     Active Substance: OXALIPLATIN
     Dosage: 45 MG/M2, Q2W
     Dates: start: 20231003, end: 20231003

REACTIONS (5)
  - Vomiting [Recovering/Resolving]
  - Tachycardia [Recovering/Resolving]
  - Hypotension [Not Recovered/Not Resolved]
  - Malaise [Recovered/Resolved]
  - Fatigue [Not Recovered/Not Resolved]

NARRATIVE: CASE EVENT DATE: 20230909
